FAERS Safety Report 11925573 (Version 1)
Quarter: 2016Q1

REPORT INFORMATION
  Report Type: Report from Study
  Country: DE (occurrence: DE)
  Receive Date: 20160118
  Receipt Date: 20160118
  Transmission Date: 20160526
  Serious: Yes (Hospitalization)
  Sender: FDA-Public Use
  Company Number: DE-ABBVIE-16P-062-1539602-00

PATIENT
  Sex: Female

DRUGS (1)
  1. DUODOPA [Suspect]
     Active Substance: CARBIDOPA\LEVODOPA
     Indication: PARKINSON^S DISEASE
     Dosage: MD 7.5 ML, CRD 3.0 ML/H, ED 1.0 ML
     Route: 050
     Dates: start: 20151208

REACTIONS (2)
  - Hyperkinesia [Not Recovered/Not Resolved]
  - Device dislocation [Not Recovered/Not Resolved]
